FAERS Safety Report 16568435 (Version 1)
Quarter: 2019Q3

REPORT INFORMATION
  Report Type: Spontaneous
  Country: US (occurrence: US)
  Receive Date: 20190712
  Receipt Date: 20190712
  Transmission Date: 20191004
  Serious: No
  Sender: FDA-Public Use
  Company Number: US-TEVA-2019-US-1077120

PATIENT
  Sex: Female

DRUGS (1)
  1. HYDROCODONE BITARTRATE AND ACETAMINOPHEN [Suspect]
     Active Substance: ACETAMINOPHEN\HYDROCODONE BITARTRATE
     Dosage: FORM STRENGTH: HYDROCODONE 5 MG/APAP 325 MG.
     Route: 065

REACTIONS (3)
  - Vision blurred [Unknown]
  - Gastrointestinal disorder [Unknown]
  - Headache [Unknown]
